FAERS Safety Report 4471767-1 (Version None)
Quarter: 2004Q4

REPORT INFORMATION
  Report Type: 
  Country: None (occurrence: None)
  Receive Date: 20041006
  Receipt Date: 20040923
  Transmission Date: 20050328
  Serious: Yes (Other)
  Sender: FDA-Public Use
  Company Number: 2004235425BR

PATIENT
  Age: 85 Year
  Sex: Female

DRUGS (9)
  1. XALATAN [Suspect]
     Indication: GLAUCOMA
     Dosage: 1 GTT, QD, OPHTHALMIC
     Route: 047
     Dates: start: 19960101
  2. DILTIAZEM HYDROCHLORIDE [Concomitant]
  3. FLUOXETINE [Concomitant]
  4. BROMAZEPAM [Concomitant]
  5. FLANAX (NAPROXEN SODIUM) [Concomitant]
  6. CALCIUM CARBONATE [Concomitant]
  7. GINKGO BILOBA [Concomitant]
  8. GLUCOSAMINE [Concomitant]
  9. AGIOLAX   (SENNA FRUIT, CHAMOMILE) [Concomitant]

REACTIONS (2)
  - BLINDNESS UNILATERAL [None]
  - CATARACT [None]
